FAERS Safety Report 25188473 (Version 1)
Quarter: 2025Q2

REPORT INFORMATION
  Report Type: Report from Study
  Country: US (occurrence: US)
  Receive Date: 20250411
  Receipt Date: 20250411
  Transmission Date: 20250716
  Serious: Yes (Other)
  Sender: ABBVIE
  Company Number: US-ABBVIE-6212691

PATIENT
  Age: 54 Year
  Sex: Female

DRUGS (8)
  1. SKYRIZI [Suspect]
     Active Substance: RISANKIZUMAB-RZAA
     Indication: Psoriasis
     Route: 058
     Dates: start: 20220502
  2. TRAMADOL [Concomitant]
     Active Substance: TRAMADOL
     Indication: Gingival disorder
     Dates: start: 20250401
  3. ETODOLAC [Concomitant]
     Active Substance: ETODOLAC
     Indication: Gingival disorder
     Dates: start: 20250401
  4. METHYLPREDNISOLONE [Concomitant]
     Active Substance: METHYLPREDNISOLONE
     Indication: Gingival disorder
     Dates: start: 20250401
  5. AMOXICILLIN [Concomitant]
     Active Substance: AMOXICILLIN
     Indication: Gingival disorder
     Dates: start: 20250401
  6. PREGABALIN [Concomitant]
     Active Substance: PREGABALIN
     Indication: Gingival disorder
     Dates: start: 20250401
  7. VENLAFAXINE HYDROCHLORIDE [Concomitant]
     Active Substance: VENLAFAXINE HYDROCHLORIDE
     Indication: Gingival disorder
     Dates: start: 20250401
  8. VITAMINS [Concomitant]
     Active Substance: VITAMINS
     Indication: Gingival disorder
     Dates: start: 20250401

REACTIONS (1)
  - Oral surgery [Not Recovered/Not Resolved]

NARRATIVE: CASE EVENT DATE: 20250401
